FAERS Safety Report 4750588-6 (Version None)
Quarter: 2005Q3

REPORT INFORMATION
  Report Type: 
  Country: None (occurrence: None)
  Receive Date: 20050819
  Receipt Date: 20050812
  Transmission Date: 20060218
  Serious: Yes (Hospitalization, Other)
  Sender: FDA-Public Use
  Company Number: HQWYE524626JUL05

PATIENT
  Age: 67 Year
  Sex: Male

DRUGS (2)
  1. TAZONAM (PIPERACILLIN/TAZOBACTAM, INJECTION) [Suspect]
     Indication: PNEUMONIA
     Dosage: 3 X 4.5 GRAMS
  2. CUROCEF (CEFUROXIME SODIUM) [Concomitant]

REACTIONS (1)
  - SEPSIS [None]
